FAERS Safety Report 8904160 (Version 5)
Quarter: 2013Q1

REPORT INFORMATION
  Report Type: Spontaneous
  Country: AU (occurrence: AU)
  Receive Date: 20121112
  Receipt Date: 20130116
  Transmission Date: 20140127
  Serious: Yes (Other)
  Sender: FDA-Public Use
  Company Number: AU-AMGEN-AUSSP2012071589

PATIENT
  Age: 66 Year
  Sex: Male

DRUGS (6)
  1. XGEVA [Suspect]
     Indication: PROSTATE CANCER METASTATIC
     Dosage: UNK
     Dates: start: 20111214, end: 20120802
  2. DOCETAXEL [Concomitant]
     Dosage: 150 MG, PER CHEMO REGIM
     Dates: start: 20120118
  3. PREDNISOLONE [Concomitant]
  4. CABAZITAXEL [Concomitant]
     Dosage: 45 MG, PER CHEMO REGIM
     Dates: start: 20121031
  5. ELIGARD [Concomitant]
     Route: 058
  6. MS CONTIN [Concomitant]

REACTIONS (3)
  - Abasia [Unknown]
  - Osteonecrosis of jaw [Not Recovered/Not Resolved]
  - Arthralgia [Unknown]
